FAERS Safety Report 13132724 (Version 1)
Quarter: 2017Q1

REPORT INFORMATION
  Report Type: Report from Study
  Country: CA (occurrence: CA)
  Receive Date: 20170120
  Receipt Date: 20170120
  Transmission Date: 20170428
  Serious: Yes (Hospitalization)
  Sender: FDA-Public Use
  Company Number: CA-AMGEN-CANSL2017008617

PATIENT
  Age: 65 Year
  Sex: Female
  Weight: 203 kg

DRUGS (1)
  1. PROLIA [Suspect]
     Active Substance: DENOSUMAB
     Indication: PRODUCT USED FOR UNKNOWN INDICATION
     Dosage: UNK
     Route: 065

REACTIONS (4)
  - Road traffic accident [Unknown]
  - Limb injury [Recovered/Resolved]
  - Joint injury [Unknown]
  - Aortic valve disease [Unknown]

NARRATIVE: CASE EVENT DATE: 2016
